FAERS Safety Report 9535078 (Version 1)
Quarter: 2013Q3

REPORT INFORMATION
  Report Type: Spontaneous
  Country: CH (occurrence: CH)
  Receive Date: 20130918
  Receipt Date: 20130918
  Transmission Date: 20140515
  Serious: Yes (Death, Hospitalization)
  Sender: FDA-Public Use
  Company Number: CH-UCBSA-098016

PATIENT
  Age: 44 Year
  Sex: Male
  Weight: 70 kg

DRUGS (11)
  1. KEPPRA [Suspect]
     Indication: EPILEPSY
     Route: 048
     Dates: start: 20130501, end: 20130512
  2. DABRAFENIB [Suspect]
     Indication: NEOPLASM MALIGNANT
     Dosage: 300 MG/DAY
     Route: 048
     Dates: start: 20130502, end: 20130512
  3. TRAMETINIB [Suspect]
     Indication: METASTATIC MALIGNANT MELANOMA
     Route: 048
     Dates: start: 20130502, end: 20130512
  4. CIPRALEX [Suspect]
     Indication: DEPRESSION
     Route: 048
     Dates: start: 20130501, end: 20130512
  5. NOVALGIN [Suspect]
     Indication: BACK PAIN
     Dosage: 1500-2000 MG/DAY
     Route: 048
     Dates: start: 20130501, end: 20130512
  6. FORTECORTIN [Suspect]
     Indication: BRAIN OEDEMA
     Route: 048
     Dates: start: 2013, end: 20130512
  7. FORTECORTIN [Suspect]
     Indication: BRAIN OEDEMA
     Dosage: 12 MG/DAY
     Route: 048
     Dates: start: 2013
  8. ORFIRIL [Suspect]
     Indication: EPILEPSY
     Dosage: 1000-1200 MG
     Route: 048
     Dates: start: 2012
  9. ORFIRIL [Suspect]
     Indication: EPILEPSY
     Route: 048
     Dates: end: 20130512
  10. IPILIMUMAB [Concomitant]
     Dosage: CYCLE
     Dates: start: 20130122
  11. CISPLATIN [Concomitant]
     Dosage: 2 CYCLES, 90 MG
     Route: 042

REACTIONS (2)
  - Neoplasm progression [Fatal]
  - Pyrexia [Recovered/Resolved]
